FAERS Safety Report 12475331 (Version 1)
Quarter: 2016Q2

REPORT INFORMATION
  Report Type: Spontaneous
  Country: HU (occurrence: HU)
  Receive Date: 20160617
  Receipt Date: 20160617
  Transmission Date: 20160815
  Serious: Yes (Hospitalization)
  Sender: FDA-Public Use
  Company Number: HU-ACTAVIS-2016-12731

PATIENT
  Sex: Male

DRUGS (12)
  1. PREDNISOLON                        /00016201/ [Concomitant]
     Active Substance: PREDNISOLONE
     Indication: PROPHYLAXIS
     Dosage: 5 MG, BID
     Route: 065
  2. CORDARONE [Concomitant]
     Active Substance: AMIODARONE HYDROCHLORIDE
     Indication: CARDIOVASCULAR DISORDER
     Dosage: 200 MG, DAILY
     Route: 048
  3. BISOPROLOL [Concomitant]
     Active Substance: BISOPROLOL
     Indication: CARDIOVASCULAR DISORDER
     Dosage: 5 MG, DAILY
     Route: 065
  4. BILUTAMID [Concomitant]
     Indication: PROSTATE CANCER METASTATIC
     Dosage: 50 MG, DAILY
     Route: 048
  5. CAMITOTIC [Suspect]
     Active Substance: DOCETAXEL
     Indication: PROSTATE CANCER METASTATIC
     Dosage: 110 MG, TOTAL
     Route: 042
     Dates: start: 20160517, end: 20160517
  6. PANTOPRAZOLE [Concomitant]
     Active Substance: PANTOPRAZOLE SODIUM
     Indication: PROPHYLAXIS
     Dosage: 40 MG, DAILY
     Route: 065
  7. OMNIC TOCAS [Concomitant]
     Indication: PROSTATE CANCER METASTATIC
     Dosage: 0.4 MG, DAILY
     Route: 065
  8. BENFOGAMMA [Concomitant]
     Indication: PROPHYLAXIS
     Dosage: 300 MG, DAILY
     Route: 048
  9. DOLFORIN [Concomitant]
     Active Substance: FENTANYL
     Indication: PAIN
     Dosage: 1 DF, TID (25MICROGRAM/HR)
     Route: 062
  10. PRADAXA [Concomitant]
     Active Substance: DABIGATRAN ETEXILATE MESYLATE
     Indication: CARDIOVASCULAR DISORDER
     Dosage: 150 MG, BID
     Route: 048
  11. TRITACE HCT [Concomitant]
     Indication: CARDIOVASCULAR DISORDER
     Dosage: 0.5 DF, DAILY (5MG RAMIPRIL, 25MG HYDROCHLOROTHIAZIDE)
     Route: 048
  12. VITAMIN D3 [Concomitant]
     Active Substance: CHOLECALCIFEROL
     Indication: PROPHYLAXIS
     Dosage: 3000 IU, DAILY
     Route: 065

REACTIONS (3)
  - Leukopenia [Recovered/Resolved]
  - Diarrhoea [Recovered/Resolved]
  - Pyrexia [Recovered/Resolved]

NARRATIVE: CASE EVENT DATE: 20160520
